FAERS Safety Report 7040599-2 (Version None)
Quarter: 2010Q4

REPORT INFORMATION
  Report Type: 
  Country: None (occurrence: None)
  Receive Date: 20101012
  Receipt Date: 20101005
  Transmission Date: 20110411
  Serious: Yes (Hospitalization)
  Sender: FDA-Public Use
  Company Number: DE-AMGEN-QUU443995

PATIENT
  Age: 44 Year
  Sex: Female

DRUGS (5)
  1. ENBREL [Suspect]
     Indication: RHEUMATOID ARTHRITIS
     Route: 058
     Dates: start: 20070911, end: 20100101
  2. ENBREL [Suspect]
     Route: 058
     Dates: start: 20100101
  3. DECORTIN-H [Concomitant]
     Dosage: 5MG, FREQUENCY UNKNOWN
  4. CALCIUM [Concomitant]
     Dosage: UNKNOWN
  5. RANITIDINE [Concomitant]
     Dosage: UNKNOWN

REACTIONS (1)
  - FOOT OPERATION [None]
